FAERS Safety Report 9100470 (Version 1)
Quarter: 2013Q1

REPORT INFORMATION
  Report Type: Spontaneous
  Country: JP (occurrence: JP)
  Receive Date: 20130215
  Receipt Date: 20130215
  Transmission Date: 20140127
  Serious: Yes (Other)
  Sender: FDA-Public Use
  Company Number: JP-PFIZER INC-2013060238

PATIENT
  Age: 9 Decade
  Sex: Female

DRUGS (1)
  1. NOVASTAN [Suspect]
     Dosage: UNK
     Route: 051

REACTIONS (1)
  - Platelet count decreased [Unknown]
